FAERS Safety Report 9363326 (Version 2)
Quarter: 2014Q2

REPORT INFORMATION
  Report Type: Report from Study
  Country: US (occurrence: US)
  Receive Date: 20130624
  Receipt Date: 20140410
  Transmission Date: 20141212
  Serious: Yes (Hospitalization)
  Sender: FDA-Public Use
  Company Number: US-CELGENEUS-163-21880-13051942

PATIENT
  Age: 67 Year
  Sex: Female
  Weight: 68.55 kg

DRUGS (62)
  1. REVLIMID [Suspect]
     Indication: PLASMA CELL MYELOMA
     Dosage: 25 MILLIGRAM
     Route: 048
     Dates: start: 20110502, end: 20111126
  2. REVLIMID [Suspect]
     Dosage: 15 MILLIGRAM
     Route: 048
     Dates: start: 20111212, end: 20120212
  3. REVLIMID [Suspect]
     Dosage: 10 MILLIGRAM
     Route: 048
     Dates: start: 20120220, end: 20130310
  4. REVLIMID [Suspect]
     Dosage: 10 MILLIGRAM
     Route: 048
     Dates: start: 20120917, end: 20130127
  5. REVLIMID [Suspect]
     Route: 048
     Dates: start: 20130416, end: 20130429
  6. REVLIMID [Suspect]
     Route: 048
     Dates: start: 200802, end: 200807
  7. THALOMID [Suspect]
     Indication: PLASMA CELL MYELOMA
     Route: 048
     Dates: start: 20080728, end: 20080802
  8. CARFILZOMIB [Suspect]
     Indication: PLASMA CELL MYELOMA
     Route: 065
     Dates: start: 20110502, end: 20110503
  9. CARFILZOMIB [Suspect]
     Route: 065
     Dates: start: 20110509, end: 20110907
  10. CARFILZOMIB [Suspect]
     Route: 065
     Dates: start: 20110919, end: 20120124
  11. CARFILZOMIB [Suspect]
     Route: 065
     Dates: start: 20120206, end: 20120221
  12. CARFILZOMIB [Suspect]
     Route: 065
     Dates: start: 20120312, end: 20120515
  13. CARFILZOMIB [Suspect]
     Route: 065
     Dates: start: 20120529, end: 20120724
  14. CARFILZOMIB [Suspect]
     Route: 065
     Dates: start: 20120820, end: 20120905
  15. DEXAMETHASONE [Suspect]
     Indication: PLASMA CELL MYELOMA
     Route: 065
     Dates: start: 200802, end: 200807
  16. DEXAMETHASONE [Suspect]
     Route: 065
     Dates: start: 20080728, end: 20080802
  17. DEXAMETHASONE [Suspect]
     Dosage: 40 MILLIGRAM
     Route: 065
     Dates: start: 20110502, end: 20130430
  18. POTASSIUM CHLORIDE [Concomitant]
     Indication: HYPOKALAEMIA
     Dosage: 40 MILLIEQUIVALENTS
     Route: 048
     Dates: start: 20130509, end: 20130509
  19. POTASSIUM CHLORIDE [Concomitant]
     Dosage: 40 MILLIEQUIVALENTS
     Route: 048
     Dates: start: 20130512, end: 20130512
  20. ADVAIR [Concomitant]
     Indication: ASTHMA
     Dosage: 500/50 DISKUS
     Route: 055
     Dates: start: 20120801
  21. ALBUTEROL SULFATE [Concomitant]
     Indication: ASTHMA
     Dosage: 1 PUFF
     Route: 045
     Dates: start: 20110503
  22. AMBIEN [Concomitant]
     Indication: INSOMNIA
     Route: 048
     Dates: start: 20110509
  23. ATIVAN [Concomitant]
     Indication: INSOMNIA
     Dosage: 1 MILLIGRAM
     Route: 048
     Dates: start: 20091026
  24. ASA [Concomitant]
     Indication: ANTICOAGULANT THERAPY
     Dosage: 81 MILLIGRAM
     Route: 048
     Dates: start: 20110501
  25. ATROVENT [Concomitant]
     Indication: ASTHMA
     Dosage: 2 MILLIGRAM
     Route: 055
     Dates: start: 20120729
  26. BIOFREEZE [Concomitant]
     Indication: MYALGIA
     Route: 061
     Dates: start: 20120417
  27. CALTRATE D [Concomitant]
     Indication: SUPPLEMENTATION THERAPY
     Route: 048
     Dates: start: 20091026
  28. CENTRUM SILVER [Concomitant]
     Indication: SUPPLEMENTATION THERAPY
     Route: 048
     Dates: start: 20091026
  29. CIPROFLOXACIN [Concomitant]
     Indication: ANTIBIOTIC PROPHYLAXIS
     Dosage: 500 MILLIGRAM
     Route: 048
     Dates: start: 20110501
  30. CLONAZEPAM [Concomitant]
     Indication: ANXIETY
     Dosage: .5 MILLIGRAM
     Route: 048
     Dates: start: 20091026
  31. FIORICET [Concomitant]
     Indication: HEADACHE
     Dosage: 325/50/40 MG
     Route: 048
     Dates: start: 20110601
  32. FLUTICASONE [Concomitant]
     Indication: DYSPNOEA
     Dosage: 88 MICROGRAM
     Route: 055
     Dates: start: 20091025
  33. FLUTICASONE [Concomitant]
     Indication: BRONCHITIS
     Route: 055
  34. HYDROCODONE BITARTRATE/HOMATROPINE METHYLBROMIDE [Concomitant]
     Indication: COUGH
     Dosage: 20 MILLILITER
     Route: 048
     Dates: start: 20120801
  35. IMODIUM [Concomitant]
     Indication: DIARRHOEA
     Route: 048
     Dates: start: 20110706
  36. LEVOXYL [Concomitant]
     Indication: HYPOTHYROIDISM
     Dosage: 25 MICROGRAM
     Route: 048
     Dates: start: 20091026
  37. LEXAPRO [Concomitant]
     Indication: DEPRESSION
     Dosage: 20 MILLIGRAM
     Route: 048
     Dates: start: 20091026
  38. LUNESTA [Concomitant]
     Indication: INSOMNIA
     Dosage: 3 MILLIGRAM
     Route: 048
     Dates: start: 20110927
  39. NEURONTIN [Concomitant]
     Indication: HEADACHE
     Dosage: 900 MILLIGRAM
     Route: 048
     Dates: start: 20120104
  40. NEXIUM [Concomitant]
     Indication: PRODUCT USED FOR UNKNOWN INDICATION
     Dosage: 40 MILLIGRAM
     Route: 048
     Dates: start: 20110307
  41. SINGULAR [Concomitant]
     Indication: DYSPNOEA
     Dosage: 10 MILLIGRAM
     Route: 048
     Dates: start: 20091025
  42. SINGULAR [Concomitant]
     Indication: BRONCHITIS
     Route: 048
  43. SINGULAR [Concomitant]
     Indication: ASTHMA
     Route: 048
  44. TESSALON PERLES [Concomitant]
     Indication: COUGH
     Dosage: 300 MILLIGRAM
     Route: 048
     Dates: start: 20120801
  45. VALIUM [Concomitant]
     Indication: MUSCLE SPASMS
     Route: 048
     Dates: start: 20110726
  46. VALTREX [Concomitant]
     Indication: ANTIVIRAL PROPHYLAXIS
     Dosage: 500 MILLIGRAM
     Route: 048
     Dates: start: 20110501
  47. VITAMIN E [Concomitant]
     Indication: SUPPLEMENTATION THERAPY
     Dosage: 400 IU (INTERNATIONAL UNIT)
     Route: 048
     Dates: start: 20091026
  48. ZOMETA [Concomitant]
     Indication: PRODUCT USED FOR UNKNOWN INDICATION
     Dosage: .0444 MILLIGRAM
     Route: 041
     Dates: start: 20091026
  49. ZOFRAN [Concomitant]
     Indication: NAUSEA
     Dosage: 4 MILLIGRAM
     Route: 041
     Dates: start: 20130514, end: 20130514
  50. BARIUM [Concomitant]
     Indication: THERAPEUTIC PROCEDURE
     Dosage: 900 MILLILITER
     Route: 048
     Dates: start: 20130508, end: 20130508
  51. GADOPENTETATE DIMEGLUMINE [Concomitant]
     Indication: THERAPEUTIC PROCEDURE
     Dosage: 20 MILLILITER
     Route: 041
     Dates: start: 20130515, end: 20130515
  52. INSULIN REGULAR [Concomitant]
     Indication: HYPERGLYCAEMIA
     Dosage: 2-8 MG
     Route: 058
     Dates: start: 20130512, end: 20130514
  53. IOVERSOL [Concomitant]
     Indication: THERAPEUTIC PROCEDURE
     Dosage: 125 MILLILITER
     Route: 041
     Dates: start: 20130508, end: 20130508
  54. MAGNESIUM OXIDE [Concomitant]
     Indication: HYPOMAGNESAEMIA
     Dosage: 800 MILLIGRAM
     Route: 048
     Dates: start: 20130510, end: 20130510
  55. MAGNESIUM SULFATE [Concomitant]
     Indication: HYPOMAGNESAEMIA
     Dosage: 2 GRAM
     Route: 041
     Dates: start: 20130511, end: 20130511
  56. MAGNESIUM SULFATE [Concomitant]
     Dosage: 2 GRAM
     Route: 041
     Dates: start: 20130513, end: 20130513
  57. MORPHINE [Concomitant]
     Indication: PAIN
     Dosage: 2-4 MG
     Route: 041
     Dates: start: 20130509, end: 20130511
  58. NORMAL SALINE [Concomitant]
     Indication: PROPHYLAXIS AGAINST DEHYDRATION
     Dosage: 75 MILLILITER
     Route: 041
     Dates: start: 20130508, end: 20130508
  59. NORMAL SALINE [Concomitant]
     Dosage: 84 MILLILITER
     Route: 041
     Dates: start: 20130511, end: 20130512
  60. NORMAL SALINE [Concomitant]
     Dosage: 84 MILLILITER
     Route: 041
     Dates: start: 20130515, end: 20130515
  61. QUESTRAN [Concomitant]
     Indication: DIARRHOEA
     Dosage: 1 PACKET
     Route: 048
     Dates: start: 20130509, end: 20130515
  62. ROXICODONE [Concomitant]
     Indication: PAIN
     Dosage: 10 MILLIGRAM
     Route: 048
     Dates: start: 20130509, end: 20130515

REACTIONS (2)
  - Adenocarcinoma pancreas [Not Recovered/Not Resolved]
  - Hepatic failure [Not Recovered/Not Resolved]
